FAERS Safety Report 8959415 (Version 1)
Quarter: 2012Q4

REPORT INFORMATION
  Report Type: 
  Country: IE (occurrence: IE)
  Receive Date: 20121211
  Receipt Date: 20121211
  Transmission Date: 20130627
  Serious: Yes (Hospitalization)
  Sender: FDA-Public Use
  Company Number: IE-MYLANLABS-2012S1024782

PATIENT
  Age: 42 Year
  Sex: Female

DRUGS (7)
  1. AMISULPRIDE [Suspect]
     Indication: SCHIZOAFFECTIVE DISORDER
     Route: 065
  2. AMISULPRIDE [Suspect]
     Indication: SCHIZOAFFECTIVE DISORDER
     Dosage: prescribed before admission
     Route: 065
  3. ARIPIPRAZOLE [Suspect]
     Indication: SCHIZOAFFECTIVE DISORDER
     Dosage: at night
     Route: 065
  4. FLUPENTIXOL [Suspect]
     Indication: SCHIZOAFFECTIVE DISORDER
     Route: 030
  5. FLUPENTIXOL [Suspect]
     Indication: SCHIZOAFFECTIVE DISORDER
     Dosage: prescribed before admission
     Route: 030
  6. LITHIUM [Suspect]
     Indication: SCHIZOAFFECTIVE DISORDER
     Dosage: at night
     Route: 065
  7. OLANZAPINE [Suspect]
     Indication: SCHIZOAFFECTIVE DISORDER
     Dosage: each evening on an as required basis
     Route: 065

REACTIONS (2)
  - Pulmonary embolism [Recovered/Resolved]
  - Akathisia [Unknown]
